FAERS Safety Report 13816019 (Version 1)
Quarter: 2017Q3

REPORT INFORMATION
  Report Type: Spontaneous
  Country: US (occurrence: US)
  Receive Date: 20170731
  Receipt Date: 20170731
  Transmission Date: 20171127
  Serious: Yes (Other)
  Sender: FDA-Public Use
  Company Number: US-SA-2017SA075757

PATIENT
  Sex: Female

DRUGS (2)
  1. AMBIEN [Suspect]
     Active Substance: ZOLPIDEM TARTRATE
     Dosage: START DATE: 10 YEARS AGO
     Route: 065
  2. AMBIEN [Suspect]
     Active Substance: ZOLPIDEM TARTRATE
     Dosage: DOSE AND FREQUENCY: IN THE AREA OF 300 MG OF ZOLPIDEM 10 MG TABLETS IN THE COURSE OF A DAY
     Route: 065

REACTIONS (2)
  - Drug dependence [Unknown]
  - Thinking abnormal [Unknown]
